FAERS Safety Report 7388773-X (Version None)
Quarter: 2011Q2

REPORT INFORMATION
  Report Type: 
  Country: None (occurrence: None)
  Receive Date: 20110401
  Receipt Date: 20110323
  Transmission Date: 20111010
  Serious: Yes (Hospitalization)
  Sender: FDA-Public Use
  Company Number: US-SANOFI-AVENTIS-2011SA018386

PATIENT
  Age: 78 Year
  Sex: Male

DRUGS (8)
  1. NASONEX [Concomitant]
  2. SELENIUM [Concomitant]
  3. LIPITOR [Concomitant]
  4. HYDROCHLOROTHIAZIDE [Concomitant]
  5. GLYBURIDE [Concomitant]
  6. SPIRIVA [Concomitant]
  7. ALTACE [Concomitant]
  8. PLAVIX [Suspect]
     Route: 048
     Dates: start: 20060101

REACTIONS (4)
  - SKIN DISCOLOURATION [None]
  - CAROTID ARTERY OCCLUSION [None]
  - PERIPHERAL ARTERIAL OCCLUSIVE DISEASE [None]
  - PRURITUS [None]
